FAERS Safety Report 9343782 (Version 1)
Quarter: 2013Q2

REPORT INFORMATION
  Report Type: Spontaneous
  Country: FR (occurrence: FR)
  Receive Date: 20130612
  Receipt Date: 20130612
  Transmission Date: 20140414
  Serious: Yes (Hospitalization)
  Sender: FDA-Public Use
  Company Number: FR-JNJFOC-20130522197

PATIENT
  Age: 40 Year
  Sex: Female

DRUGS (15)
  1. EVRA [Suspect]
     Indication: CONTRACEPTION
     Route: 062
  2. DOXORUBICIN [Suspect]
     Indication: LYMPHOMA
     Dosage: THIRD COURSE
     Route: 042
     Dates: start: 20111219, end: 20111219
  3. METHOTREXATE [Suspect]
     Indication: LYMPHOMA
     Route: 030
     Dates: start: 20111219, end: 20111219
  4. HYDROCORTANCYL [Suspect]
     Indication: LYMPHOMA
     Route: 030
     Dates: start: 20111219, end: 20111219
  5. METHYLPREDNISOLONE [Suspect]
     Indication: LYMPHOMA
     Dosage: THIRD COURSE
     Route: 042
     Dates: start: 20111219, end: 20111219
  6. MABTHERA [Suspect]
     Indication: LYMPHOMA
     Dosage: THIRD COURSE
     Route: 042
     Dates: start: 20111219, end: 20111219
  7. VINCRISTINE [Suspect]
     Indication: LYMPHOMA
     Dosage: THIRD COURSE
     Route: 042
     Dates: start: 20111219, end: 20111219
  8. ENDOXAN [Suspect]
     Indication: LYMPHOMA
     Dosage: THIRD COURSE
     Route: 042
     Dates: start: 20111219, end: 20111219
  9. UROMITEXAN [Suspect]
     Indication: LYMPHOMA
     Dosage: THIRD COURSE
     Route: 042
     Dates: start: 20111219, end: 20111219
  10. PARACETAMOL [Concomitant]
     Route: 065
  11. GRANOCYTE [Concomitant]
     Route: 065
  12. VALACICLOVIR [Concomitant]
     Route: 065
  13. PREDNISONE [Concomitant]
     Route: 065
  14. VITAMINE B12 [Concomitant]
     Route: 065
  15. ESOMEPRAZOL [Concomitant]
     Route: 065

REACTIONS (2)
  - Cerebral venous thrombosis [Recovered/Resolved with Sequelae]
  - Headache [Recovered/Resolved with Sequelae]
